FAERS Safety Report 5719742-0 (Version None)
Quarter: 2008Q2

REPORT INFORMATION
  Report Type: 
  Country: None (occurrence: None)
  Receive Date: 20080428
  Receipt Date: 20080421
  Transmission Date: 20081010
  Serious: Yes (Other)
  Sender: FDA-Public Use
  Company Number: PHHY2008ZA06159

PATIENT
  Age: 89 Year
  Sex: Male

DRUGS (1)
  1. ZOMETA [Suspect]
     Dosage: 4MG POWDER FOR SOLUTION

REACTIONS (6)
  - CONFUSIONAL STATE [None]
  - DELUSIONAL DISORDER, UNSPECIFIED TYPE [None]
  - FATIGUE [None]
  - NAUSEA [None]
  - RESTLESSNESS [None]
  - VOMITING [None]
